FAERS Safety Report 9790935 (Version 1)
Quarter: 2013Q4

REPORT INFORMATION
  Report Type: Spontaneous
  Country: US (occurrence: US)
  Receive Date: 20131231
  Receipt Date: 20131231
  Transmission Date: 20140711
  Serious: Yes (Disabling)
  Sender: FDA-Public Use
  Company Number: US-MYLANLABS-2013S1028787

PATIENT
  Age: 19 Year
  Sex: Male

DRUGS (18)
  1. FLUVOXAMINE [Suspect]
     Indication: GENERALISED ANXIETY DISORDER
     Dosage: 50MG QD
     Route: 065
  2. FLUVOXAMINE [Suspect]
     Indication: OBSESSIVE-COMPULSIVE DISORDER
     Dosage: 50MG QD
     Route: 065
  3. METHYLPHENIDATE [Suspect]
     Indication: ATTENTION DEFICIT/HYPERACTIVITY DISORDER
     Dosage: 18MG QD
     Route: 065
  4. LISDEXAMFETAMINE [Suspect]
     Indication: ATTENTION DEFICIT/HYPERACTIVITY DISORDER
     Dosage: 20MG QD; INCREASED TO 30MG QD AFTER 2W
     Route: 065
  5. LISDEXAMFETAMINE [Suspect]
     Indication: ATTENTION DEFICIT/HYPERACTIVITY DISORDER
     Dosage: 30MG QD; LATER INCREASED TO 40MG QD
     Route: 065
  6. LISDEXAMFETAMINE [Suspect]
     Indication: ATTENTION DEFICIT/HYPERACTIVITY DISORDER
     Dosage: 40MG QD
     Route: 065
  7. AMFETAMINE [Suspect]
     Indication: ATTENTION DEFICIT/HYPERACTIVITY DISORDER
     Dosage: EXTENDED-RELEASE (XR) 10MG QD; INCREASED TO 20MG QD WITHIN 3W
     Route: 065
  8. AMFETAMINE [Suspect]
     Indication: ATTENTION DEFICIT/HYPERACTIVITY DISORDER
     Dosage: 18MG QD
     Route: 065
  9. AMFETAMINE [Suspect]
     Indication: ATTENTION DEFICIT/HYPERACTIVITY DISORDER
     Dosage: IMMEDIATE-RELEASE (IR)
     Route: 065
  10. QUETIAPINE [Concomitant]
     Indication: INSOMNIA
     Dosage: QHS
     Route: 065
  11. FLUOXETINE [Concomitant]
     Indication: GENERALISED ANXIETY DISORDER
     Dosage: 20MG QD; TITRATED TO 40MG QD
     Route: 065
  12. FLUOXETINE [Concomitant]
     Indication: GENERALISED ANXIETY DISORDER
     Dosage: 40MG QD (TAKEN INTERMITTENTLY); LATER INCREASED TO 50MG QD
     Route: 065
  13. FLUOXETINE [Concomitant]
     Indication: OBSESSIVE-COMPULSIVE DISORDER
     Dosage: 20MG QD; TITRATED TO 40MG QD
     Route: 065
  14. FLUOXETINE [Concomitant]
     Indication: OBSESSIVE-COMPULSIVE DISORDER
     Dosage: 40MG QD (TAKEN INTERMITTENTLY); LATER INCREASED TO 50MG QD
     Route: 065
  15. FLUOXETINE [Concomitant]
     Indication: OBSESSIVE-COMPULSIVE DISORDER
     Dosage: 50MG QD; INCREASED TO 60MG QD
     Route: 065
  16. FLUOXETINE [Concomitant]
     Indication: GENERALISED ANXIETY DISORDER
     Dosage: 50MG QD; INCREASED TO 60MG QD
     Route: 065
  17. FLUOXETINE [Concomitant]
     Indication: GENERALISED ANXIETY DISORDER
     Dosage: 60MG QD
     Route: 065
  18. FLUOXETINE [Concomitant]
     Indication: OBSESSIVE-COMPULSIVE DISORDER
     Dosage: 60MG QD
     Route: 065

REACTIONS (14)
  - Drug ineffective [Recovering/Resolving]
  - Obsessive-compulsive disorder [Unknown]
  - Condition aggravated [Unknown]
  - Anxiety [Recovering/Resolving]
  - Dizziness [Unknown]
  - Palpitations [Unknown]
  - Sedation [Unknown]
  - Decreased appetite [Unknown]
  - Insomnia [Recovering/Resolving]
  - Tic [Recovering/Resolving]
  - Condition aggravated [Recovering/Resolving]
  - Abdominal discomfort [Unknown]
  - Weight decreased [Unknown]
  - Mood altered [Unknown]
